FAERS Safety Report 21770669 (Version 2)
Quarter: 2022Q4

REPORT INFORMATION
  Report Type: Report from Study
  Country: US (occurrence: US)
  Receive Date: 20221223
  Receipt Date: 20221226
  Transmission Date: 20230113
  Serious: Yes (Death)
  Sender: FDA-Public Use
  Company Number: US-ABBVIE-4247743

PATIENT
  Age: 64 Year
  Sex: Male

DRUGS (7)
  1. VENCLEXTA [Suspect]
     Active Substance: VENETOCLAX
     Indication: Myelodysplastic syndrome
     Dosage: DAY 1-14 OF EACH 28 DAY CYCLE
     Route: 048
     Dates: start: 20211022
  2. ACYCLOVIR [Concomitant]
     Active Substance: ACYCLOVIR
     Indication: Product used for unknown indication
     Dosage: FORM STRENGTH: 400 MG
  3. POSACONAZOLE [Concomitant]
     Active Substance: POSACONAZOLE
     Indication: Product used for unknown indication
     Dosage: FORM STRENGTH: 300 MG
     Route: 048
  4. LEVOFLOXACIN [Concomitant]
     Active Substance: LEVOFLOXACIN
     Indication: Product used for unknown indication
     Dosage: FORM STRENGTH: 8 MG
  5. prochlorperazine 300 MG [Concomitant]
     Indication: Product used for unknown indication
     Dosage: FORM STRENGTH: 10 MG
  6. AZACITIDINE [Concomitant]
     Active Substance: AZACITIDINE
     Indication: Product used for unknown indication
     Dosage: FORM STRENGTH: 150.75MG
     Route: 058
  7. ONDANSETRON [Concomitant]
     Active Substance: ONDANSETRON
     Indication: Product used for unknown indication
     Dosage: FORM STRENGTH: 8 MG

REACTIONS (2)
  - Death [Fatal]
  - Off label use [Unknown]

NARRATIVE: CASE EVENT DATE: 20221126
